FAERS Safety Report 25980761 (Version 1)
Quarter: 2025Q4

REPORT INFORMATION
  Report Type: Spontaneous
  Country: CN (occurrence: CN)
  Receive Date: 20251030
  Receipt Date: 20251030
  Transmission Date: 20260117
  Serious: Yes (Other)
  Sender: ALCON
  Company Number: CN-ALCON LABORATORIES-ALC2025CN006031

PATIENT
  Age: 59 Year
  Sex: Male
  Weight: 81 kg

DRUGS (1)
  1. FLUORESCEIN SODIUM [Suspect]
     Active Substance: FLUORESCEIN SODIUM
     Indication: Angiogram retina
     Dosage: 4 ML, QD
     Route: 042
     Dates: start: 20251023, end: 20251023

REACTIONS (1)
  - Blood pressure decreased [Recovered/Resolved]

NARRATIVE: CASE EVENT DATE: 20251023
